FAERS Safety Report 23135157 (Version 1)
Quarter: 2023Q4

REPORT INFORMATION
  Report Type: Spontaneous
  Country: FR (occurrence: None)
  Receive Date: 20231101
  Receipt Date: 20231101
  Transmission Date: 20240110
  Serious: Yes (Other)
  Sender: FDA-Public Use
  Company Number: 2023A243232

PATIENT
  Age: 60 Year
  Sex: Female

DRUGS (4)
  1. BUDESONIDE [Suspect]
     Active Substance: BUDESONIDE
     Indication: Cough
     Dosage: 1.0MG ONCE/SINGLE ADMINISTRATION
     Route: 055
     Dates: start: 20230831, end: 20230914
  2. TERBUTALINE SULFATE [Suspect]
     Active Substance: TERBUTALINE SULFATE
     Indication: Cough
     Dosage: 1.0DF ONCE/SINGLE ADMINISTRATION
     Route: 055
     Dates: start: 20230831, end: 20230914
  3. LEVOCETIRIZINE HYDROCHLORIDE [Suspect]
     Active Substance: LEVOCETIRIZINE HYDROCHLORIDE
     Indication: Cough
     Dosage: 10MG/DAY10.0MG ONCE/SINGLE ADMINISTRATION
     Route: 048
     Dates: start: 20230831, end: 20230914
  4. IPRATROPIUM BROMIDE\FENOTEROL HYDROBROMIDE [Suspect]
     Active Substance: FENOTEROL HYDROBROMIDE\IPRATROPIUM BROMIDE
     Indication: Cough
     Dosage: 1.0DF ONCE/SINGLE ADMINISTRATION
     Route: 055
     Dates: start: 20230831, end: 20230914

REACTIONS (2)
  - Insomnia [Recovering/Resolving]
  - Agitation [Recovering/Resolving]

NARRATIVE: CASE EVENT DATE: 20230916
